FAERS Safety Report 6306186-6 (Version None)
Quarter: 2009Q3

REPORT INFORMATION
  Report Type: 
  Country: None (occurrence: None)
  Receive Date: 20090812
  Receipt Date: 20090806
  Transmission Date: 20100115
  Serious: Yes (Other)
  Sender: FDA-Public Use
  Company Number: US-ROCHE-649058

PATIENT
  Age: 65 Year
  Sex: Female

DRUGS (4)
  1. XENICAL [Suspect]
     Indication: OBESITY
     Route: 048
  2. XENICAL [Suspect]
     Route: 048
     Dates: start: 20090722
  3. ZETIA [Concomitant]
  4. MYLANTA [Concomitant]

REACTIONS (3)
  - CONSTIPATION [None]
  - DIABETES MELLITUS [None]
  - WEIGHT INCREASED [None]
